FAERS Safety Report 25879290 (Version 1)
Quarter: 2025Q4

REPORT INFORMATION
  Report Type: Spontaneous
  Country: JP (occurrence: JP)
  Receive Date: 20251003
  Receipt Date: 20251003
  Transmission Date: 20260118
  Serious: Yes (Death)
  Sender: INCYTE
  Company Number: JP-002147023-NVSJ2025JP009862

PATIENT
  Age: 6 Decade

DRUGS (1)
  1. RUXOLITINIB [Suspect]
     Active Substance: RUXOLITINIB
     Indication: Acute graft versus host disease
     Dosage: UNK

REACTIONS (1)
  - Post transplant lymphoproliferative disorder [Fatal]
